FAERS Safety Report 8407655-5 (Version None)
Quarter: 2012Q2

REPORT INFORMATION
  Report Type: 
  Country: None (occurrence: None)
  Receive Date: 20120604
  Receipt Date: 20120525
  Transmission Date: 20120825
  Serious: Yes (Other)
  Sender: FDA-Public Use
  Company Number: US-ASTRAZENECA-2012SE34378

PATIENT
  Age: 54 Year
  Sex: Female

DRUGS (1)
  1. CRESTOR [Suspect]

REACTIONS (7)
  - HEAD INJURY [None]
  - PELVIC FRACTURE [None]
  - BACK INJURY [None]
  - OSTEOPOROSIS [None]
  - SPINAL FRACTURE [None]
  - NECK INJURY [None]
  - FALL [None]
